FAERS Safety Report 6950159-7 (Version None)
Quarter: 2010Q3

REPORT INFORMATION
  Report Type: 
  Country: None (occurrence: None)
  Receive Date: 20100828
  Receipt Date: 20100201
  Transmission Date: 20110219
  Serious: No
  Sender: FDA-Public Use
  Company Number: US-ABBOTT-10P-163-0620617-00

PATIENT
  Sex: Female
  Weight: 46.308 kg

DRUGS (9)
  1. NIASPAN [Suspect]
     Indication: BLOOD CHOLESTEROL INCREASED
     Dates: start: 20100112
  2. NEXIUM [Concomitant]
     Indication: GASTROOESOPHAGEAL REFLUX DISEASE
     Route: 048
  3. WARFARIN SODIUM [Concomitant]
     Indication: ATRIAL FIBRILLATION
     Dosage: ALTERNATES DAYS WITH 4MG TABLETS AS NEEDED
     Route: 048
  4. WARFARIN SODIUM [Concomitant]
     Dosage: ALTERNATES DAYS WITH 2MG TABLETS AS NEEDED
     Route: 048
  5. TIKOSYN [Concomitant]
     Indication: ATRIAL FIBRILLATION
  6. SPIRIVA [Concomitant]
     Indication: ASTHMA
  7. LUMIGAN [Concomitant]
     Indication: DRY EYE
     Route: 031
  8. MULTIVITAMIN [Concomitant]
     Indication: VITAMIN SUPPLEMENTATION
  9. REFRESH [Concomitant]
     Indication: DRY EYE
     Dosage: TAKE WITH LUMIGAN DROPS

REACTIONS (7)
  - ABDOMINAL PAIN UPPER [None]
  - DIARRHOEA [None]
  - FLUSHING [None]
  - PRURITUS [None]
  - RASH [None]
  - SINUS CONGESTION [None]
  - SINUS HEADACHE [None]
